FAERS Safety Report 7272591-7 (Version None)
Quarter: 2011Q1

REPORT INFORMATION
  Report Type: 
  Country: None (occurrence: None)
  Receive Date: 20110128
  Receipt Date: 20110112
  Transmission Date: 20110831
  Serious: Yes (Other)
  Sender: FDA-Public Use
  Company Number: 1000017155

PATIENT
  Age: 53 Year
  Sex: Male

DRUGS (3)
  1. EQUANIL [Suspect]
     Indication: ALCOHOL WITHDRAWAL SYNDROME
     Dosage: ORAL
     Route: 048
     Dates: end: 20100927
  2. COTAREG (VALSARTAN) [Suspect]
     Indication: HYPERTENSION
     Dosage: ORAL
     Route: 048
     Dates: start: 20100501, end: 20100927
  3. ACAMPROSATE CALCIUM [Suspect]
     Indication: ALCOHOL WITHDRAWAL SYNDROME
     Dosage: 4 DF (1 DOSAGE FORMS, 4 IN 1 D), ORAL
     Route: 048
     Dates: start: 20100816, end: 20100927

REACTIONS (1)
  - HEPATOCELLULAR INJURY [None]
